FAERS Safety Report 10734538 (Version 1)
Quarter: 2015Q1

REPORT INFORMATION
  Report Type: Spontaneous
  Country: US (occurrence: CH)
  Receive Date: 20150123
  Receipt Date: 20150123
  Transmission Date: 20150721
  Serious: Yes (Hospitalization, Other)
  Sender: FDA-Public Use
  Company Number: CH-FRI-1000073755

PATIENT
  Sex: Male

DRUGS (3)
  1. ACE-HEMMER COMP [Concomitant]
  2. ASENAPINE [Suspect]
     Active Substance: ASENAPINE
     Indication: DYSPHEMIA
     Dosage: 10 MG
     Route: 060
  3. VENLAFAXINE HYDROCHLORIDE. [Concomitant]
     Active Substance: VENLAFAXINE HYDROCHLORIDE

REACTIONS (9)
  - Dizziness [Unknown]
  - Restlessness [Unknown]
  - Cardiovascular disorder [Recovered/Resolved]
  - Orthostatic hypotension [Unknown]
  - Off label use [Recovered/Resolved]
  - Tremor [Unknown]
  - Agitation [Unknown]
  - Syncope [Recovered/Resolved]
  - Loss of libido [Unknown]
